FAERS Safety Report 9455173 (Version 1)
Quarter: 2013Q3

REPORT INFORMATION
  Report Type: Spontaneous
  Country: US (occurrence: US)
  Receive Date: 20130813
  Receipt Date: 20130813
  Transmission Date: 20140515
  Serious: No
  Sender: FDA-Public Use
  Company Number: US-BIOGENIDEC-2013BI073896

PATIENT
  Age: 45 Year
  Sex: Male

DRUGS (5)
  1. AVONEX [Suspect]
     Indication: MULTIPLE SCLEROSIS
     Route: 030
     Dates: start: 20130205
  2. MOTRIN IB [Concomitant]
  3. BENAZEPRIL HCL [Concomitant]
  4. COREG [Concomitant]
  5. LOVASTATIN [Concomitant]

REACTIONS (2)
  - Influenza like illness [Unknown]
  - Diarrhoea [Unknown]
